FAERS Safety Report 6465282-3 (Version None)
Quarter: 2009Q4

REPORT INFORMATION
  Report Type: 
  Country: None (occurrence: None)
  Receive Date: 20091201
  Receipt Date: 20090317
  Transmission Date: 20100525
  Serious: No
  Sender: FDA-Public Use
  Company Number: US-AMGEN-KDL239109

PATIENT
  Sex: Male

DRUGS (4)
  1. ENBREL [Suspect]
     Indication: PSORIASIS
     Route: 058
     Dates: start: 20070227, end: 20070519
  2. ENBREL [Suspect]
     Indication: PSORIATIC ARTHROPATHY
  3. ANTIINFLAMMATORY NOS [Concomitant]
     Dates: start: 20080101, end: 20080201
  4. HYDROCODONE [Concomitant]
     Dates: start: 20080101, end: 20080201

REACTIONS (6)
  - ANXIETY [None]
  - DISORIENTATION [None]
  - DIZZINESS [None]
  - FEELING ABNORMAL [None]
  - MEMORY IMPAIRMENT [None]
  - VISUAL IMPAIRMENT [None]
